FAERS Safety Report 5736638-9 (Version None)
Quarter: 2008Q2

REPORT INFORMATION
  Report Type: 
  Country: None (occurrence: None)
  Receive Date: 20080513
  Receipt Date: 20080501
  Transmission Date: 20081010
  Serious: Yes (Other)
  Sender: FDA-Public Use
  Company Number: US-PFIZER INC-2008000702

PATIENT
  Sex: Female
  Weight: 65.8 kg

DRUGS (3)
  1. CHANTIX [Suspect]
     Indication: SMOKING CESSATION THERAPY
  2. GLUCOSAMINE [Concomitant]
  3. DRUG, UNSPECIFIED [Concomitant]

REACTIONS (27)
  - ABDOMINAL DISTENSION [None]
  - ABNORMAL DREAMS [None]
  - AGGRESSION [None]
  - ANXIETY [None]
  - COUGH [None]
  - CRYING [None]
  - DEPRESSION [None]
  - DISORIENTATION [None]
  - DYSGEUSIA [None]
  - DYSPNOEA [None]
  - FATIGUE [None]
  - FEELING ABNORMAL [None]
  - GINGIVAL BLEEDING [None]
  - GLOSSITIS [None]
  - HYPERSOMNIA [None]
  - INSOMNIA [None]
  - LETHARGY [None]
  - MOOD SWINGS [None]
  - MOUTH ULCERATION [None]
  - ORAL DISORDER [None]
  - PHARYNGEAL DISORDER [None]
  - PHARYNGOLARYNGEAL PAIN [None]
  - POSTNASAL DRIP [None]
  - SUFFOCATION FEELING [None]
  - THROAT IRRITATION [None]
  - UNEVALUABLE EVENT [None]
  - WEIGHT INCREASED [None]
